FAERS Safety Report 12282187 (Version 1)
Quarter: 2016Q2

REPORT INFORMATION
  Report Type: Spontaneous
  Country: GB (occurrence: GB)
  Receive Date: 20160419
  Receipt Date: 20160419
  Transmission Date: 20160815
  Serious: Yes (Hospitalization, Disabling)
  Sender: FDA-Public Use
  Company Number: GB-WATSON-2016-07309

PATIENT
  Age: 45 Year
  Sex: Female

DRUGS (7)
  1. PREDNISOLONE (UNKNOWN) [Suspect]
     Active Substance: PREDNISOLONE
     Dosage: 50 MG, DAILY (60MG OD INITIALLY ON A REDUCING DOSE OF 10MG WEEKLY - LAST DOSE TAKEN ON 22/03/16 WAS)
     Route: 048
     Dates: start: 20160310, end: 20160317
  2. PREDNISOLONE (UNKNOWN) [Suspect]
     Active Substance: PREDNISOLONE
     Dosage: 60 MG, DAILY (60MG OD INITIALLY ON A REDUCING DOSE OF 10MG WEEKLY - LAST DOSE TAKEN ON 22/03/16 WAS)
     Route: 048
     Dates: start: 20160303, end: 20160310
  3. AMITRIPTYLINE [Concomitant]
     Active Substance: AMITRIPTYLINE
     Indication: PRODUCT USED FOR UNKNOWN INDICATION
     Dosage: UNK
     Route: 065
  4. OMEPRAZOLE. [Concomitant]
     Active Substance: OMEPRAZOLE
     Indication: PRODUCT USED FOR UNKNOWN INDICATION
     Dosage: UNK
     Route: 065
  5. NIFEDIPINE. [Concomitant]
     Active Substance: NIFEDIPINE
     Indication: PRODUCT USED FOR UNKNOWN INDICATION
     Dosage: UNK
     Route: 065
  6. LEVOTHYROXINE. [Concomitant]
     Active Substance: LEVOTHYROXINE
     Indication: PRODUCT USED FOR UNKNOWN INDICATION
     Dosage: UNK
     Route: 065
  7. PREDNISOLONE (UNKNOWN) [Suspect]
     Active Substance: PREDNISOLONE
     Indication: INFLAMMATION
     Dosage: 40 MG, DAILY (60MG OD INITIALLY ON A REDUCING DOSE OF 10MG WEEKLY - LAST DOSE TAKEN ON 22/03/16 WAS)
     Route: 048
     Dates: start: 20160317, end: 20160322

REACTIONS (3)
  - Hallucination, visual [Recovered/Resolved]
  - Delusion [Recovered/Resolved]
  - Acute psychosis [Recovered/Resolved]

NARRATIVE: CASE EVENT DATE: 20160321
